FAERS Safety Report 24588174 (Version 1)
Quarter: 2024Q4

REPORT INFORMATION
  Report Type: Spontaneous
  Country: TR (occurrence: TR)
  Receive Date: 20241107
  Receipt Date: 20241107
  Transmission Date: 20250115
  Serious: Yes (Hospitalization)
  Sender: TASMAN PHARMA
  Company Number: TR-TASMAN PHARMA, INC.-2024TSM00245

PATIENT
  Age: 19 Year
  Sex: Male

DRUGS (5)
  1. CLOZAPINE [Suspect]
     Active Substance: CLOZAPINE
     Indication: Bipolar disorder
     Dosage: 100 MG, 1X/DAY
  2. CLOZAPINE [Suspect]
     Active Substance: CLOZAPINE
     Dosage: 18 TABLETS OF 100 MG, ONCE
  3. VALPROATE SODIUM [Suspect]
     Active Substance: VALPROATE SODIUM
     Dosage: 1000 MG, 1X/DAY
  4. METHYLPHENIDATE [Suspect]
     Active Substance: METHYLPHENIDATE
     Dosage: 54 MG, 1X/DAY
  5. LURASIDONE [Suspect]
     Active Substance: LURASIDONE
     Dosage: 40 MG, 1X/DAY

REACTIONS (3)
  - Lumbosacral plexopathy [Recovering/Resolving]
  - Overdose [Unknown]
  - Toxicity to various agents [Unknown]
